FAERS Safety Report 16912754 (Version 1)
Quarter: 2019Q4

REPORT INFORMATION
  Report Type: Spontaneous
  Country: FR (occurrence: FR)
  Receive Date: 20191014
  Receipt Date: 20191014
  Transmission Date: 20200122
  Serious: Yes (Hospitalization)
  Sender: FDA-Public Use
  Company Number: FR-ACCORD-157484

PATIENT
  Age: 64 Year
  Sex: Female

DRUGS (2)
  1. OXALIPLATINE ACCORD [Suspect]
     Active Substance: OXALIPLATIN
     Indication: PANCREATIC CARCINOMA
     Route: 041
     Dates: start: 20190826, end: 20190911
  2. IRINOTECAN [Suspect]
     Active Substance: IRINOTECAN
     Indication: PANCREATIC CARCINOMA
     Route: 041
     Dates: start: 20190826, end: 20190911

REACTIONS (2)
  - Laryngospasm [Recovered/Resolved]
  - Off label use [Unknown]

NARRATIVE: CASE EVENT DATE: 20190826
